FAERS Safety Report 4714932-8 (Version None)
Quarter: 2005Q3

REPORT INFORMATION
  Report Type: 
  Country: None (occurrence: None)
  Receive Date: 20050713
  Receipt Date: 20050706
  Transmission Date: 20060218
  Serious: Yes (Hospitalization)
  Sender: FDA-Public Use
  Company Number: UKP05000208

PATIENT
  Age: 80 Year
  Sex: Male

DRUGS (2)
  1. ACTONEL [Suspect]
     Indication: OSTEOPOROSIS PROPHYLAXIS
     Dosage: 35 MG, 1/WEEK, ORAL
     Route: 048
  2. WARFARIN SODIUM [Concomitant]

REACTIONS (3)
  - ABDOMINAL PAIN [None]
  - BARRETT'S OESOPHAGUS [None]
  - HAEMATEMESIS [None]
